FAERS Safety Report 24691636 (Version 1)
Quarter: 2024Q4

REPORT INFORMATION
  Report Type: Spontaneous
  Country: US (occurrence: US)
  Receive Date: 20241203
  Receipt Date: 20241203
  Transmission Date: 20250115
  Serious: No
  Sender: ROCHE
  Company Number: US-ROCHE-10000141030

PATIENT
  Age: 56 Year
  Sex: Male

DRUGS (10)
  1. RITUXIMAB [Suspect]
     Active Substance: RITUXIMAB
     Indication: Lymphadenopathy
     Route: 065
  2. CYCLOPHOSPHAMIDE [Concomitant]
     Active Substance: CYCLOPHOSPHAMIDE
  3. DOXORUBICIN [Concomitant]
     Active Substance: DOXORUBICIN
  4. VINCRISTINE [Concomitant]
     Active Substance: VINCRISTINE
  5. METHOTREXATE [Concomitant]
     Active Substance: METHOTREXATE
  6. IFOSFAMIDE [Concomitant]
     Active Substance: IFOSFAMIDE
  7. IFOSFAMIDE [Concomitant]
     Active Substance: IFOSFAMIDE
  8. CYTARABINE [Concomitant]
     Active Substance: CYTARABINE
  9. ETOPOSIDE [Concomitant]
     Active Substance: ETOPOSIDE
  10. BENDAMUSTINE [Concomitant]
     Active Substance: BENDAMUSTINE

REACTIONS (2)
  - Pneumonia viral [Recovered/Resolved]
  - Pneumonia bacterial [Recovered/Resolved]
